FAERS Safety Report 9937680 (Version 2)
Quarter: 2014Q1

REPORT INFORMATION
  Report Type: Spontaneous
  Country: JP (occurrence: JP)
  Receive Date: 20140303
  Receipt Date: 20140303
  Transmission Date: 20141002
  Serious: Yes (Other)
  Sender: FDA-Public Use
  Company Number: 2014SP000628

PATIENT
  Age: 69 Year
  Sex: Male

DRUGS (3)
  1. METHOTREXATE [Suspect]
     Indication: METASTATIC GASTRIC CANCER
  2. FLUOROURACIL [Concomitant]
     Indication: METASTATIC GASTRIC CANCER
  3. FOLINIC ACID [Concomitant]

REACTIONS (2)
  - Ascites [Unknown]
  - Renal impairment [Unknown]
